FAERS Safety Report 5285776-6 (Version None)
Quarter: 2007Q1

REPORT INFORMATION
  Report Type: 
  Country: None (occurrence: None)
  Receive Date: 20070128
  Receipt Date: 20061107
  Transmission Date: 20070707
  Serious: No
  Sender: FDA-Public Use
  Company Number: POMP-10873

PATIENT
  Age: 55 Year
  Sex: Male
  Weight: 97.977 kg

DRUGS (3)
  1. MYOZYME [Suspect]
     Indication: GLYCOGEN STORAGE DISEASE TYPE II
     Dosage: 1860 MG Q2WKS IV
     Route: 042
     Dates: start: 20060807
  2. LAMISIL [Concomitant]
  3. ECOTRIN [Concomitant]

REACTIONS (2)
  - ANGIOEDEMA [None]
  - URTICARIA [None]
